FAERS Safety Report 12619590 (Version 2)
Quarter: 2016Q3

REPORT INFORMATION
  Report Type: Spontaneous
  Country: JP (occurrence: JP)
  Receive Date: 20160803
  Receipt Date: 20160830
  Transmission Date: 20161109
  Serious: Yes (Death, Hospitalization, Other)
  Sender: FDA-Public Use
  Company Number: JP-PFIZER INC-2016370621

PATIENT
  Age: 15 Year
  Sex: Male

DRUGS (44)
  1. DASATINIB [Suspect]
     Active Substance: DASATINIB
     Dosage: 100 MG, UNK
     Route: 048
  2. CYTARABINE. [Suspect]
     Active Substance: CYTARABINE
     Dosage: 30 MG, 2X/WEEK
     Route: 029
  3. MEROPENEM. [Concomitant]
     Active Substance: MEROPENEM
     Route: 041
  4. BIAPENEM [Concomitant]
     Active Substance: BIAPENEM
     Route: 041
  5. HUMAN NORMAL IMMUNOGLOBULIN [Concomitant]
     Active Substance: HUMAN IMMUNOGLOBULIN G
  6. IMATINIB MESILATE [Suspect]
     Active Substance: IMATINIB MESYLATE
     Indication: ACUTE LYMPHOCYTIC LEUKAEMIA
     Dosage: 600 MG, UNK
     Route: 048
  7. DASATINIB [Suspect]
     Active Substance: DASATINIB
     Indication: ACUTE LYMPHOCYTIC LEUKAEMIA
     Dosage: 140 MG, UNK
     Route: 048
  8. VORICONAZOLE. [Concomitant]
     Active Substance: VORICONAZOLE
  9. LENOGRASTIM [Concomitant]
     Active Substance: LENOGRASTIM
  10. METHOTREXATE. [Concomitant]
     Active Substance: METHOTREXATE
     Indication: PROPHYLAXIS AGAINST GRAFT VERSUS HOST DISEASE
  11. LEUNASE [Suspect]
     Active Substance: ASPARAGINASE
     Indication: ACUTE LYMPHOCYTIC LEUKAEMIA
     Dosage: 2000 DF, UNK
  12. AMPHOTERICIN B. [Concomitant]
     Active Substance: AMPHOTERICIN B
     Dosage: 3 MG/KG, UNK
  13. PREDNISOLONE. [Suspect]
     Active Substance: PREDNISOLONE
     Indication: ACUTE LYMPHOCYTIC LEUKAEMIA
     Dosage: 80 MG, UNK
  14. FLUCONAZOLE. [Concomitant]
     Active Substance: FLUCONAZOLE
     Indication: INFECTION PROPHYLAXIS
  15. AMPHOTERICIN B. [Concomitant]
     Active Substance: AMPHOTERICIN B
     Dosage: 3 MG/KG, UNK
  16. TACROLIMUS. [Concomitant]
     Active Substance: TACROLIMUS
     Indication: PROPHYLAXIS AGAINST GRAFT VERSUS HOST DISEASE
  17. PAZUFLOXACIN MESILATE [Concomitant]
     Active Substance: PAZUFLOXACIN MESILATE
     Route: 041
  18. CLINDAMYCIN PHOSPHATE. [Concomitant]
     Active Substance: CLINDAMYCIN PHOSPHATE
  19. MYCOPHENOLATE MOFETIL. [Concomitant]
     Active Substance: MYCOPHENOLATE MOFETIL
     Route: 048
  20. CYCLOPHOSPHAMIDE. [Suspect]
     Active Substance: CYCLOPHOSPHAMIDE
     Indication: ACUTE LYMPHOCYTIC LEUKAEMIA
     Dosage: 1200 MG/M2, UNK
     Route: 042
  21. METHOTREXATE. [Suspect]
     Active Substance: METHOTREXATE
     Indication: ACUTE LYMPHOCYTIC LEUKAEMIA
     Dosage: UNK
     Route: 024
  22. CEFAZOLIN SODIUM. [Concomitant]
     Active Substance: CEFAZOLIN SODIUM
  23. TEICOPLANIN [Concomitant]
     Active Substance: TEICOPLANIN
     Route: 041
  24. PIPERACILLIN AND TAZOBACTAM [Concomitant]
     Active Substance: PIPERACILLIN SODIUM\TAZOBACTAM SODIUM
     Route: 042
  25. LINEZOLID. [Concomitant]
     Active Substance: LINEZOLID
  26. FOSCARNET SODIUM. [Concomitant]
     Active Substance: FOSCARNET SODIUM
     Route: 041
  27. CYCLOPHOSPHAMIDE. [Suspect]
     Active Substance: CYCLOPHOSPHAMIDE
     Dosage: 120 MG/KG, UNK
     Route: 042
  28. PREDNISOLONE. [Suspect]
     Active Substance: PREDNISOLONE
     Dosage: UNK MG, UNK
  29. CICLOSPORIN [Concomitant]
     Active Substance: CYCLOSPORINE
  30. METHOTREXATE. [Suspect]
     Active Substance: METHOTREXATE
     Dosage: 12 MG, 2X/WEEK
     Route: 024
  31. CYTARABINE. [Suspect]
     Active Substance: CYTARABINE
     Indication: ACUTE LYMPHOCYTIC LEUKAEMIA
     Dosage: UNK
     Route: 029
  32. HYDROCORTISONE SODIUM PHOSPHATE [Suspect]
     Active Substance: HYDROCORTISONE SODIUM PHOSPHATE
     Dosage: 25 MG, 2X/WEEK
     Route: 029
  33. AMIKACIN SULFATE. [Concomitant]
     Active Substance: AMIKACIN SULFATE
     Indication: FEBRILE NEUTROPENIA
  34. AMPHOTERICIN B. [Concomitant]
     Active Substance: AMPHOTERICIN B
     Dosage: 5 MG/KG, UNK
  35. AMPHOTERICIN B. [Concomitant]
     Active Substance: AMPHOTERICIN B
     Dosage: 2 MG/KG, UNK
  36. ADRIACIN [Suspect]
     Active Substance: DOXORUBICIN HYDROCHLORIDE
     Indication: ACUTE LYMPHOCYTIC LEUKAEMIA
     Dosage: 25 MG/M2, UNK
     Route: 042
  37. VINCRISTINE SULFATE. [Suspect]
     Active Substance: VINCRISTINE SULFATE
     Indication: ACUTE LYMPHOCYTIC LEUKAEMIA
     Dosage: 2 MG, UNK
     Route: 042
  38. HYDROCORTISONE SODIUM PHOSPHATE [Suspect]
     Active Substance: HYDROCORTISONE SODIUM PHOSPHATE
     Indication: ACUTE LYMPHOCYTIC LEUKAEMIA
     Dosage: UNK
     Route: 029
  39. SULFAMETHOXAZOLE AND TRIMETHOPRIM [Concomitant]
     Active Substance: SULFAMETHOXAZOLE\TRIMETHOPRIM
     Indication: INFECTION PROPHYLAXIS
     Route: 048
  40. CEFEPIME HYDROCHLORIDE. [Concomitant]
     Active Substance: CEFEPIME HYDROCHLORIDE
     Indication: FEBRILE NEUTROPENIA
     Route: 042
  41. DORIPENEM [Concomitant]
     Active Substance: DORIPENEM
     Route: 041
  42. CIPROFLOXACIN. [Concomitant]
     Active Substance: CIPROFLOXACIN
  43. ANTITHYMOCYTE IMMUNOGLOBULIN [Concomitant]
     Active Substance: THYMOCYTE IMMUNE GLOBULIN NOS
     Route: 042
  44. METHYLPREDNISOLONE SODIUM SUCCINATE. [Concomitant]
     Active Substance: METHYLPREDNISOLONE SODIUM SUCCINATE
     Route: 042

REACTIONS (10)
  - Neutropenia [Unknown]
  - Mucormycosis [Recovered/Resolved]
  - Hypokalaemia [Unknown]
  - Febrile neutropenia [Unknown]
  - Pneumonia [Unknown]
  - Human herpesvirus 6 infection [Unknown]
  - Pseudomonas infection [Unknown]
  - Graft versus host disease [Fatal]
  - Encephalitis [Unknown]
  - Blood creatinine increased [Unknown]
